FAERS Safety Report 7438214-9 (Version None)
Quarter: 2011Q2

REPORT INFORMATION
  Report Type: 
  Country: None (occurrence: None)
  Receive Date: 20110426
  Receipt Date: 20110225
  Transmission Date: 20111010
  Serious: Yes (Hospitalization, Other)
  Sender: FDA-Public Use
  Company Number: US-BAYER-201034536NA

PATIENT
  Age: 29 Year
  Sex: Female
  Weight: 68.027 kg

DRUGS (9)
  1. YASMIN [Suspect]
     Indication: ORAL CONTRACEPTION
     Route: 048
     Dates: start: 20060101, end: 20081001
  2. CIPRO [Concomitant]
     Dosage: 500 MG, UNK
     Route: 048
  3. OCELLA [Suspect]
     Indication: ORAL CONTRACEPTION
     Dosage: UNK
     Dates: start: 20081001, end: 20081201
  4. LORA TAB [Concomitant]
     Route: 048
  5. PROVERA [Concomitant]
     Dosage: 10 MG, UNK
  6. PHENERGAN HCL [Concomitant]
     Dosage: 12.5 MG, UNK
     Route: 048
  7. YAZ [Suspect]
     Indication: PRODUCT USED FOR UNKNOWN INDICATION
  8. XANAX [Concomitant]
     Dosage: 1 MG, UNK
     Route: 048
  9. PROMETHAZINE [Concomitant]
     Dosage: 25 MG, UNK
     Route: 048

REACTIONS (2)
  - GALLBLADDER DISORDER [None]
  - CHOLELITHIASIS [None]
